FAERS Safety Report 9867224 (Version 1)
Quarter: 2014Q1

REPORT INFORMATION
  Report Type: Spontaneous
  Country: US (occurrence: US)
  Receive Date: 20140204
  Receipt Date: 20140204
  Transmission Date: 20141002
  Serious: Yes (Hospitalization, Other)
  Sender: FDA-Public Use
  Company Number: US-DRREDDYS-USA/USA/14/0037685

PATIENT
  Sex: Male
  Weight: 2.65 kg

DRUGS (14)
  1. LAMOTRIGINE TABLETS [Suspect]
     Indication: MAJOR DEPRESSION
     Route: 064
  2. LAMOTRIGINE TABLETS [Suspect]
     Indication: OBSESSIVE-COMPULSIVE DISORDER
  3. QUETIAPINE FUMARATE TABLETS [Suspect]
     Indication: DEPRESSION
     Route: 064
  4. QUETIAPINE FUMARATE TABLETS [Suspect]
     Indication: OBSESSIVE-COMPULSIVE DISORDER
  5. FLUOXETINE [Suspect]
     Indication: DEPRESSION
     Route: 064
  6. FLUOXETINE [Suspect]
     Indication: OBSESSIVE-COMPULSIVE DISORDER
  7. PAROXETINE [Suspect]
     Indication: MAJOR DEPRESSION
     Route: 064
  8. PAROXETINE [Suspect]
     Indication: OBSESSIVE-COMPULSIVE DISORDER
  9. CLONAZEPAM [Suspect]
     Indication: PRODUCT USED FOR UNKNOWN INDICATION
     Route: 064
  10. LORAZEPAM [Suspect]
     Indication: DEPRESSION
     Route: 064
  11. LORAZEPAM [Suspect]
     Indication: OBSESSIVE-COMPULSIVE DISORDER
  12. LORAZEPAM [Suspect]
     Indication: ANXIETY
  13. HALOPERIDOL [Suspect]
     Indication: DEPRESSION
     Route: 064
  14. HALOPERIDOL [Suspect]
     Indication: OBSESSIVE-COMPULSIVE DISORDER

REACTIONS (3)
  - Premature baby [Unknown]
  - Transverse presentation [Unknown]
  - Foetal exposure during pregnancy [Unknown]
